FAERS Safety Report 7560659-7 (Version None)
Quarter: 2011Q2

REPORT INFORMATION
  Report Type: 
  Country: None (occurrence: None)
  Receive Date: 20110621
  Receipt Date: 20110615
  Transmission Date: 20111010
  Serious: Yes (Other)
  Sender: FDA-Public Use
  Company Number: JP-PFIZER INC-2011130603

PATIENT
  Age: 69 Year
  Sex: Male
  Weight: 85 kg

DRUGS (2)
  1. CLINDAMYCIN PHOSPHATE [Suspect]
     Indication: INFECTION
     Dosage: UNK
     Dates: start: 20090601
  2. MEROPENEM [Suspect]
     Indication: INFECTION
     Dosage: UNK
     Dates: start: 20090601

REACTIONS (1)
  - RENAL IMPAIRMENT [None]
